FAERS Safety Report 9124555 (Version 1)
Quarter: 2013Q1

REPORT INFORMATION
  Report Type: Spontaneous
  Country: US (occurrence: US)
  Receive Date: 20130227
  Receipt Date: 20130227
  Transmission Date: 20140127
  Serious: Yes (Hospitalization, Other)
  Sender: FDA-Public Use
  Company Number: US-ELI_LILLY_AND_COMPANY-US201302007596

PATIENT
  Sex: Male

DRUGS (3)
  1. HUMULIN REGULAR [Suspect]
     Indication: TYPE 2 DIABETES MELLITUS
     Dosage: 45 U, QD
  2. LANTUS [Concomitant]
     Dosage: 40 U, QD
  3. OXYGEN [Concomitant]
     Dosage: UNK, UNKNOWN

REACTIONS (1)
  - Blood glucose increased [Recovered/Resolved]
